FAERS Safety Report 15245880 (Version 2)
Quarter: 2018Q3

REPORT INFORMATION
  Report Type: Spontaneous
  Country: NL (occurrence: NL)
  Receive Date: 20180806
  Receipt Date: 20180905
  Transmission Date: 20181010
  Serious: Yes (Death, Hospitalization, Other)
  Sender: FDA-Public Use
  Company Number: PHHY2018NL057135

PATIENT
  Sex: Male

DRUGS (2)
  1. PREDNISONE. [Suspect]
     Active Substance: PREDNISONE
     Indication: PRODUCT USED FOR UNKNOWN INDICATION
     Dosage: UNK
     Route: 065
  2. CYCLOPHOSPHAMIDE. [Suspect]
     Active Substance: CYCLOPHOSPHAMIDE
     Indication: PRODUCT USED FOR UNKNOWN INDICATION
     Dosage: UNK
     Route: 065

REACTIONS (12)
  - Pyrexia [Unknown]
  - Listeriosis [Fatal]
  - Pseudomonal sepsis [Fatal]
  - Respiratory tract infection fungal [Fatal]
  - Lung infection [Unknown]
  - Meningitis listeria [Fatal]
  - Neutropenia [Fatal]
  - Aspergillus infection [Unknown]
  - Depressed level of consciousness [Recovering/Resolving]
  - Respiratory failure [Fatal]
  - Cardiac failure [Fatal]
  - Tachypnoea [Fatal]
